FAERS Safety Report 8858839 (Version 1)
Quarter: 2012Q4

REPORT INFORMATION
  Report Type: 
  Country: US (occurrence: US)
  Receive Date: 20121024
  Receipt Date: 20121024
  Transmission Date: 20130627
  Serious: Yes (Other)
  Sender: FDA-Public Use
  Company Number: US-SANOFI-AVENTIS-2012SA075853

PATIENT
  Age: 81 Year
  Sex: Female

DRUGS (2)
  1. PLAVIX [Suspect]
     Indication: ANGIOPLASTY
     Route: 048
     Dates: start: 2010, end: 2012
  2. PLAVIX [Suspect]
     Indication: STENT PLACEMENT
     Route: 048
     Dates: start: 2010, end: 2012

REACTIONS (2)
  - Oesophageal disorder [Not Recovered/Not Resolved]
  - Dysphagia [Not Recovered/Not Resolved]
